FAERS Safety Report 15545347 (Version 1)
Quarter: 2018Q4

REPORT INFORMATION
  Report Type: Spontaneous
  Country: US (occurrence: US)
  Receive Date: 20181017
  Receipt Date: 20181017
  Transmission Date: 20190205
  Serious: Yes (Hospitalization)
  Sender: FDA-Public Use
  Company Number: None

PATIENT
  Age: 63 Year
  Sex: Male
  Weight: 50.1 kg

DRUGS (2)
  1. HEPARIN 10, 000 UNITS/L0ML [Suspect]
     Active Substance: HEPARIN SODIUM
     Route: 011
     Dates: start: 20181004, end: 20181004
  2. HEPARIN 10, 000 UNITS/10ML [Suspect]
     Active Substance: HEPARIN SODIUM

REACTIONS (3)
  - Product quality issue [None]
  - Therapeutic response increased [None]
  - Therapeutic response decreased [None]

NARRATIVE: CASE EVENT DATE: 20181004
